FAERS Safety Report 26082823 (Version 1)
Quarter: 2025Q4

REPORT INFORMATION
  Report Type: Spontaneous
  Country: US (occurrence: None)
  Receive Date: 20251123
  Receipt Date: 20251123
  Transmission Date: 20260117
  Serious: Yes (Life-Threatening, Disabling)
  Sender: FDA-CTU
  Company Number: None

PATIENT
  Age: 55 Year
  Sex: Male
  Weight: 96.75 kg

DRUGS (15)
  1. LOSARTAN [Suspect]
     Active Substance: LOSARTAN
     Indication: Hypertension
     Dosage: 30 TABLET(S) TWICE A DAY ORAL
     Route: 048
     Dates: start: 20251103
  2. AMLODIPINE BESYLATE [Suspect]
     Active Substance: AMLODIPINE BESYLATE
  3. METOPROLOL SUCCINATE [Suspect]
     Active Substance: METOPROLOL SUCCINATE
  4. HYDROCHLOROTHIAZIDE [Suspect]
     Active Substance: HYDROCHLOROTHIAZIDE
  5. SPIRONOLACTONE [Suspect]
     Active Substance: SPIRONOLACTONE
  6. ATORVASTATIN [Suspect]
     Active Substance: ATORVASTATIN
  7. BIKTARVY [Suspect]
     Active Substance: BICTEGRAVIR SODIUM\EMTRICITABINE\TENOFOVIR ALAFENAMIDE FUMARATE
  8. Biktarvy (HIV medication) [Concomitant]
  9. LOSARTAN [Concomitant]
     Active Substance: LOSARTAN
  10. AMLODIPINE [Concomitant]
     Active Substance: AMLODIPINE BESYLATE
  11. METOPROLOL [Concomitant]
     Active Substance: METOPROLOL
  12. HYDROCHLOROTHIAZIDE [Concomitant]
     Active Substance: HYDROCHLOROTHIAZIDE
  13. SPIRONOLACTONE [Concomitant]
     Active Substance: SPIRONOLACTONE
  14. VITAMIN D [Concomitant]
     Active Substance: VITAMIN D NOS
  15. VITAMINS [Concomitant]
     Active Substance: VITAMINS

REACTIONS (4)
  - Therapy interrupted [None]
  - Disease recurrence [None]
  - Emotional distress [None]
  - Product dispensing issue [None]

NARRATIVE: CASE EVENT DATE: 20251117
